FAERS Safety Report 10067211 (Version 4)
Quarter: 2014Q3

REPORT INFORMATION
  Report Type: Report from Study
  Country: FR (occurrence: FR)
  Receive Date: 20140409
  Receipt Date: 20140923
  Transmission Date: 20150326
  Serious: Yes (Life-Threatening, Hospitalization)
  Sender: FDA-Public Use
  Company Number: FR-ROCHE-1360785

PATIENT
  Age: 6 Year
  Sex: Male

DRUGS (9)
  1. RITUXIMAB [Suspect]
     Active Substance: RITUXIMAB
     Indication: BURKITT^S LEUKAEMIA
     Dosage: LAST DOSE PRIOR TO SEPSIS, MENINGITIS AND CHORIORETINITIS TAKEN ON 03/FEB/2014 308 MG?LAST DOSE PRIO
     Route: 042
     Dates: start: 20131214
  2. HYDROCORTISONE. [Suspect]
     Active Substance: HYDROCORTISONE
     Indication: B-CELL LYMPHOMA
     Dosage: LAST DOSE PRIOR TO ONSET OF ENCEPHALITIS TAKEN ON 06/MAR/2014
     Route: 042
     Dates: start: 20140306
  3. CYTARABINE. [Suspect]
     Active Substance: CYTARABINE
     Indication: B-CELL LYMPHOMA
     Dosage: LAST DOSE PRIOR TO SEPSIS, MENINGITIS AND CHORIORETINITIS TAKEN ON FROM 03/FEB/2014 TO 07/FEB/2014,
     Route: 042
     Dates: start: 20131214
  4. METHOTREXATE [Suspect]
     Active Substance: METHOTREXATE
     Indication: B-CELL LYMPHOMA
     Dosage: LAST DOSE PRIOR TO ONSET OF ENCEPHALITIS TAKEN ON 06/MAR/2014
     Route: 042
     Dates: start: 20140306
  5. BACTRIM [Concomitant]
     Active Substance: SULFAMETHOXAZOLE\TRIMETHOPRIM
     Indication: INFECTION PROPHYLAXIS
     Route: 048
     Dates: start: 20131214
  6. RITUXIMAB [Suspect]
     Active Substance: RITUXIMAB
     Route: 042
     Dates: start: 20140402
  7. CYTARABINE. [Suspect]
     Active Substance: CYTARABINE
     Dosage: LAST DOSE PRIOR TO SEPSIS, MENINGITIS AND CHORIORETINITIS TAKEN ON FROM 04/FEB/2014 TO 07/FEB/2014,
     Route: 042
     Dates: start: 20131214
  8. VEPESIDE [Suspect]
     Active Substance: ETOPOSIDE
     Indication: B-CELL LYMPHOMA
     Dosage: LAST DOSE PRIOR TO SEPSIS, MENINGITIS AND CHORIORETINITIS TAKEN FROM 04/FEB/2014 TO 07/FEB/2014, 164
     Route: 042
     Dates: start: 20131214
  9. METHOTREXATE [Suspect]
     Active Substance: METHOTREXATE
     Route: 042

REACTIONS (4)
  - Sepsis [Recovered/Resolved]
  - Encephalitis [Recovering/Resolving]
  - Chorioretinitis [Recovered/Resolved]
  - Meningitis [Recovered/Resolved]

NARRATIVE: CASE EVENT DATE: 20140218
